FAERS Safety Report 9848201 (Version 1)
Quarter: 2014Q1

REPORT INFORMATION
  Report Type: Spontaneous
  Country: US (occurrence: US)
  Receive Date: 20140128
  Receipt Date: 20140128
  Transmission Date: 20141002
  Serious: No
  Sender: FDA-Public Use
  Company Number: US-PFIZER INC-2014022902

PATIENT
  Age: 59 Year
  Sex: Male
  Weight: 65.76 kg

DRUGS (6)
  1. OXYCODONE HYDROCHLORIDE [Suspect]
     Indication: TUMOUR PAIN
     Dosage: 05 MG, UNK
     Dates: start: 20131226
  2. OXYCODONE HYDROCHLORIDE [Suspect]
     Indication: NEOPLASM
     Dosage: 10 MG, UNK
     Dates: end: 20140112
  3. MORPHINE [Suspect]
     Indication: TUMOUR PAIN
     Dosage: UNK, 2X/DAY
  4. MORPHINE [Suspect]
     Indication: NEOPLASM
     Dosage: UNK, 3X/DAY
  5. COLACE [Concomitant]
     Indication: LAXATIVE SUPPORTIVE CARE
     Dosage: UNK
  6. B-KOMPLEX ^LECIVA^ [Concomitant]
     Dosage: UNK

REACTIONS (1)
  - Drug ineffective [Unknown]
